FAERS Safety Report 4865868-3 (Version None)
Quarter: 2005Q4

REPORT INFORMATION
  Report Type: 
  Country: None (occurrence: None)
  Receive Date: 20051220
  Receipt Date: 20051207
  Transmission Date: 20060501
  Serious: Yes (Death, Hospitalization)
  Sender: FDA-Public Use
  Company Number: 2005158923

PATIENT
  Age: 62 Year
  Sex: Male
  Weight: 63 kg

DRUGS (4)
  1. GENOTROPIN [Suspect]
     Indication: HYPOPITUITARISM
     Dosage: 0.4 MG (0.4 MG, 1 IN 1D), SUBCUTANEOUS
     Route: 058
     Dates: start: 20040801, end: 20050106
  2. HYDROCORTISONE [Concomitant]
  3. THYROXIN (LEVOTHYROXINE SODIUM) [Concomitant]
  4. MINRIN (DESMOPRESSIN) [Concomitant]

REACTIONS (5)
  - APATHY [None]
  - HEADACHE [None]
  - NEOPLASM RECURRENCE [None]
  - PINEALOMA [None]
  - SOMNOLENCE [None]
